FAERS Safety Report 24926601 (Version 3)
Quarter: 2025Q1

REPORT INFORMATION
  Report Type: Report from Study
  Country: US (occurrence: US)
  Receive Date: 20250205
  Receipt Date: 20250319
  Transmission Date: 20250408
  Serious: Yes (Other)
  Sender: STALLERGENES
  Company Number: US-STALCOR-2025-AER-00381

PATIENT
  Age: 16 Year
  Sex: Female

DRUGS (2)
  1. PALFORZIA [Suspect]
     Active Substance: PEANUT
     Indication: Food allergy
     Dosage: LVL9: 200MG-REACTIVE DOSE STARTED ON 28-JAN-2025
     Route: 048
     Dates: start: 20250128
  2. EPINEPHRINE [Concomitant]
     Active Substance: EPINEPHRINE
     Indication: Anaphylactic reaction

REACTIONS (11)
  - Pharyngeal paraesthesia [Recovering/Resolving]
  - Face oedema [Recovering/Resolving]
  - Angioedema [Recovering/Resolving]
  - Rash [Recovering/Resolving]
  - Bronchospasm [Recovering/Resolving]
  - Oropharyngeal discomfort [Recovering/Resolving]
  - Anaphylactic reaction [Recovering/Resolving]
  - Urticaria [Recovering/Resolving]
  - Wheezing [Recovering/Resolving]
  - Pruritus [Recovering/Resolving]
  - Product use in unapproved therapeutic environment [Recovering/Resolving]

NARRATIVE: CASE EVENT DATE: 20250130
